FAERS Safety Report 4428826-9 (Version None)
Quarter: 2004Q3

REPORT INFORMATION
  Report Type: 
  Country: None (occurrence: None)
  Receive Date: 20040818
  Receipt Date: 20040805
  Transmission Date: 20050211
  Serious: Yes (Hospitalization)
  Sender: FDA-Public Use
  Company Number: IT-GLAXOSMITHKLINE-B0341708A

PATIENT
  Age: 35 Year
  Sex: Female

DRUGS (3)
  1. GLAZIDIM [Suspect]
     Dosage: 4G PER DAY
     Route: 042
     Dates: start: 20040526, end: 20040604
  2. AULIN (NIMESULIDE) [Suspect]
     Dosage: 100MG TWICE PER DAY
     Route: 048
     Dates: start: 20040401, end: 20040516
  3. TEICOPLANIN [Concomitant]
     Dosage: 200MG PER DAY
     Route: 042
     Dates: start: 20040525, end: 20040531

REACTIONS (5)
  - ALANINE AMINOTRANSFERASE INCREASED [None]
  - ASPARTATE AMINOTRANSFERASE INCREASED [None]
  - GRANULOCYTOPENIA [None]
  - MYELOPROLIFERATIVE DISORDER [None]
  - TRANSAMINASES INCREASED [None]
